FAERS Safety Report 7474385-6 (Version None)
Quarter: 2011Q2

REPORT INFORMATION
  Report Type: 
  Country: None (occurrence: None)
  Receive Date: 20110511
  Receipt Date: 20110415
  Transmission Date: 20111010
  Serious: No
  Sender: FDA-Public Use
  Company Number: US-BAYER-2011-003312

PATIENT
  Age: 22 Year
  Sex: Female
  Weight: 49.887 kg

DRUGS (1)
  1. MAGNEVIST [Suspect]
     Indication: NUCLEAR MAGNETIC RESONANCE IMAGING
     Dosage: 10 ML, UNK
     Route: 042
     Dates: start: 20110108, end: 20110108

REACTIONS (1)
  - NO ADVERSE EVENT [None]
